FAERS Safety Report 4813933-9 (Version None)
Quarter: 2005Q4

REPORT INFORMATION
  Report Type: 
  Country: None (occurrence: None)
  Receive Date: 20051028
  Receipt Date: 20040924
  Transmission Date: 20060501
  Serious: No
  Sender: FDA-Public Use
  Company Number: US-GLAXOSMITHKLINE-A0527306A

PATIENT
  Age: 78 Year
  Sex: Female

DRUGS (13)
  1. SEREVENT [Suspect]
     Indication: EMPHYSEMA
     Dosage: 1PUFF TWICE PER DAY
     Route: 055
     Dates: start: 20040601, end: 20040920
  2. DURAGESIC-100 [Concomitant]
  3. COZAAR [Concomitant]
  4. SYNTHROID [Concomitant]
  5. ACTONEL [Concomitant]
  6. ATENOLOL [Concomitant]
  7. PREVACID [Concomitant]
  8. PAXIL [Concomitant]
  9. NORVASC [Concomitant]
  10. VITAMIN B-12 [Concomitant]
  11. LANTUS [Concomitant]
  12. OXYGEN [Concomitant]
  13. DUONEB [Concomitant]

REACTIONS (7)
  - DEHYDRATION [None]
  - INCREASED UPPER AIRWAY SECRETION [None]
  - LETHARGY [None]
  - OEDEMA PERIPHERAL [None]
  - SOMNOLENCE [None]
  - WEIGHT INCREASED [None]
  - WHEEZING [None]
